FAERS Safety Report 9196994 (Version 1)
Quarter: 2013Q1

REPORT INFORMATION
  Report Type: Spontaneous
  Country: US (occurrence: US)
  Receive Date: 20130328
  Receipt Date: 20130328
  Transmission Date: 20140127
  Serious: Yes (Other)
  Sender: FDA-Public Use
  Company Number: US-ASTRAZENECA-2013SE18336

PATIENT
  Age: 616 Month
  Sex: Female

DRUGS (8)
  1. TAMOXIFEN [Suspect]
     Indication: BREAST CANCER
     Dosage: BRAND MEDICATION
     Route: 048
  2. TAMOXIFEN [Suspect]
     Indication: BREAST CANCER
     Dosage: GENERIC
     Dates: start: 2008, end: 201009
  3. ZOLADEX [Suspect]
     Indication: BREAST CANCER
     Route: 058
     Dates: start: 201108
  4. ZOLADEX [Suspect]
     Indication: BREAST CANCER
     Route: 058
  5. FEMARA [Concomitant]
  6. FEMARA [Concomitant]
     Dates: start: 201009
  7. BLOOD PRESSURE MEDICATION [Concomitant]
  8. CHOLESTEROL MEDICATION [Concomitant]

REACTIONS (5)
  - Malignant neoplasm progression [Unknown]
  - Device expulsion [Unknown]
  - Injection site bruising [Unknown]
  - Vaginal haemorrhage [Unknown]
  - Off label use [Unknown]
